FAERS Safety Report 14783692 (Version 2)
Quarter: 2018Q3

REPORT INFORMATION
  Report Type: Spontaneous
  Country: IT (occurrence: IT)
  Receive Date: 20180420
  Receipt Date: 20180706
  Transmission Date: 20181010
  Serious: Yes (Hospitalization)
  Sender: FDA-Public Use
  Company Number: IT-JNJFOC-20180421948

PATIENT
  Age: 4 Year
  Sex: Female
  Weight: 15 kg

DRUGS (2)
  1. VERMOX [Suspect]
     Active Substance: MEBENDAZOLE
     Indication: INFECTION PARASITIC
     Route: 048
     Dates: start: 20180331, end: 20180401
  2. NUROFEN [Suspect]
     Active Substance: IBUPROFEN
     Indication: OTITIS MEDIA
     Route: 048
     Dates: start: 20180402, end: 20180402

REACTIONS (3)
  - Aphonia [Recovered/Resolved]
  - Balance disorder [Recovered/Resolved]
  - Dizziness [Recovered/Resolved]

NARRATIVE: CASE EVENT DATE: 20180402
